FAERS Safety Report 4595352-6 (Version None)
Quarter: 2005Q1

REPORT INFORMATION
  Report Type: 
  Country: None (occurrence: None)
  Receive Date: 20050223
  Receipt Date: 20050118
  Transmission Date: 20050727
  Serious: Yes (Hospitalization)
  Sender: FDA-Public Use
  Company Number: 05-0015-PO

PATIENT
  Age: 63 Year
  Sex: Female

DRUGS (7)
  1. MEFENAMIC ACID [Suspect]
     Indication: PAIN
     Dosage: 1500 MG (DAILY)
     Dates: start: 20040401
  2. ATENOLOL [Suspect]
     Indication: HYPERTENSION
     Dosage: 50 MG (DAILY) ORAL
     Route: 048
     Dates: start: 19970101
  3. SIMVASTATIN [Suspect]
     Indication: BLOOD CHOLESTEROL INCREASED
     Dosage: 40 MG (DAILY) ORAL
     Route: 048
     Dates: start: 20030301, end: 20041119
  4. AMLODIPINE [Concomitant]
  5. TIBOLONE [Concomitant]
  6. LANSOPRAZOLE [Concomitant]
  7. MEBEVERINE [Concomitant]

REACTIONS (4)
  - DIALYSIS [None]
  - PAIN IN EXTREMITY [None]
  - RENAL FAILURE ACUTE [None]
  - RHABDOMYOLYSIS [None]
